FAERS Safety Report 15412419 (Version 2)
Quarter: 2018Q4

REPORT INFORMATION
  Report Type: Spontaneous
  Country: US (occurrence: US)
  Receive Date: 20180921
  Receipt Date: 20181217
  Transmission Date: 20190204
  Serious: No
  Sender: FDA-Public Use
  Company Number: US-SA-2018SA262419

PATIENT
  Sex: Female

DRUGS (1)
  1. CERDELGA [Suspect]
     Active Substance: ELIGLUSTAT
     Dosage: 3200 U, EVERY TWO WEEKS
     Route: 041
     Dates: start: 201604

REACTIONS (3)
  - Abdominal pain [Recovering/Resolving]
  - Diarrhoea [Recovering/Resolving]
  - Product dose omission [Unknown]
